FAERS Safety Report 10646870 (Version 2)
Quarter: 2015Q1

REPORT INFORMATION
  Report Type: Spontaneous
  Country: US (occurrence: US)
  Receive Date: 20141211
  Receipt Date: 20150216
  Transmission Date: 20150720
  Serious: Yes (Hospitalization, Other)
  Sender: FDA-Public Use
  Company Number: US-GILEAD-2014-0126505

PATIENT
  Age: 56 Year
  Sex: Female

DRUGS (2)
  1. LETAIRIS [Suspect]
     Active Substance: AMBRISENTAN
     Indication: PRODUCT USED FOR UNKNOWN INDICATION
     Dosage: 10 MG, QD
     Route: 065
     Dates: start: 20140626
  2. VELETRI [Concomitant]
     Active Substance: EPOPROSTENOL

REACTIONS (6)
  - Dyspnoea [Unknown]
  - Fluid retention [Unknown]
  - Hypercalcaemia [Unknown]
  - Asthenia [Unknown]
  - Anaemia [Unknown]
  - Blood potassium decreased [Unknown]
